FAERS Safety Report 5676491-5 (Version None)
Quarter: 2008Q2

REPORT INFORMATION
  Report Type: 
  Country: None (occurrence: None)
  Receive Date: 20080312
  Receipt Date: 20070730
  Transmission Date: 20081010
  Serious: Yes (Other)
  Sender: FDA-Public Use
  Company Number: 07-029

PATIENT
  Age: 70 Year
  Sex: Male
  Weight: 82.5547 kg

DRUGS (1)
  1. SULFASALAZINE EC 500MG TABLETS [Suspect]
     Indication: CROHN'S DISEASE
     Dosage: 2X500MG
     Dates: start: 20060903, end: 20060925

REACTIONS (1)
  - DRUG INEFFECTIVE [None]
